FAERS Safety Report 13674394 (Version 5)
Quarter: 2017Q3

REPORT INFORMATION
  Report Type: Spontaneous
  Country: IE (occurrence: IE)
  Receive Date: 20170621
  Receipt Date: 20170817
  Transmission Date: 20171127
  Serious: Yes (Other)
  Sender: FDA-Public Use
  Company Number: IE-JNJFOC-20170613503

PATIENT
  Age: 33 Year
  Sex: Female

DRUGS (2)
  1. ADALIMUMAB [Suspect]
     Active Substance: ADALIMUMAB
     Indication: CROHN^S DISEASE
     Route: 058
  2. STELARA [Suspect]
     Active Substance: USTEKINUMAB
     Indication: CROHN^S DISEASE
     Route: 058

REACTIONS (12)
  - Depression [Not Recovered/Not Resolved]
  - Vaginal laceration [Recovering/Resolving]
  - Drug effect incomplete [Unknown]
  - Vaginal discharge [Recovering/Resolving]
  - Vulvovaginal pain [Recovered/Resolved]
  - Off label use [Unknown]
  - Vulval disorder [Recovering/Resolving]
  - Product use issue [Unknown]
  - Suicidal ideation [Unknown]
  - Cushing^s syndrome [Unknown]
  - Impaired quality of life [Unknown]
  - Lymphoedema [Recovering/Resolving]
